FAERS Safety Report 13371150 (Version 1)
Quarter: 2017Q1

REPORT INFORMATION
  Report Type: Spontaneous
  Country: US (occurrence: US)
  Receive Date: 20170324
  Receipt Date: 20170324
  Transmission Date: 20170429
  Serious: Yes (Hospitalization)
  Sender: FDA-Public Use
  Company Number: US-TAIHO ONCOLOGY INC-EU-2017-00507

PATIENT
  Age: 80 Year
  Sex: Male

DRUGS (13)
  1. LONSURF [Suspect]
     Active Substance: TIPIRACIL HYDROCHLORIDE\TRIFLURIDINE
     Indication: COLON CANCER
     Route: 048
     Dates: start: 20170307
  2. COREG [Concomitant]
     Active Substance: CARVEDILOL
     Dosage: NI
  3. EMLA [Concomitant]
     Active Substance: LIDOCAINE\PRILOCAINE
     Dosage: NI
  4. LISINOPRIL. [Concomitant]
     Active Substance: LISINOPRIL
     Dosage: NI
  5. ELIQUIS [Concomitant]
     Active Substance: APIXABAN
     Dosage: NI
  6. GABAPENTIN. [Concomitant]
     Active Substance: GABAPENTIN
     Dosage: NI
  7. OMEPRAZOLE. [Concomitant]
     Active Substance: OMEPRAZOLE
     Dosage: NI
  8. SALBUTAMOL [Concomitant]
     Active Substance: ALBUTEROL
     Dosage: NI
  9. MICRO-K [Concomitant]
     Active Substance: POTASSIUM CHLORIDE
     Dosage: NI
  10. FUROSEMIDE. [Concomitant]
     Active Substance: FUROSEMIDE
     Dosage: NI
  11. LEVOTHYROXINE SODIUM. [Concomitant]
     Active Substance: LEVOTHYROXINE SODIUM
     Dosage: NI
  12. LEVEMIR [Concomitant]
     Active Substance: INSULIN DETEMIR
     Dosage: NI
  13. XANAX [Concomitant]
     Active Substance: ALPRAZOLAM
     Dosage: NI

REACTIONS (2)
  - Malaise [Not Recovered/Not Resolved]
  - Nausea [Not Recovered/Not Resolved]

NARRATIVE: CASE EVENT DATE: 20170316
